FAERS Safety Report 16651926 (Version 1)
Quarter: 2019Q3

REPORT INFORMATION
  Report Type: Spontaneous
  Country: US (occurrence: US)
  Receive Date: 20190730
  Receipt Date: 20190730
  Transmission Date: 20191004
  Serious: Yes (Life-Threatening, Hospitalization)
  Sender: FDA-Public Use
  Company Number: None

PATIENT
  Age: 28 Year
  Sex: Male

DRUGS (2)
  1. TRIMETHOPRIM-SULFAMETHOXAZOLE [Suspect]
     Active Substance: SULFAMETHOXAZOLE\TRIMETHOPRIM
     Indication: RECTAL ABSCESS
     Route: 048
  2. TRIMETHOPRIM-SULFAMETHOXAZOLE [Concomitant]
     Active Substance: SULFAMETHOXAZOLE\TRIMETHOPRIM

REACTIONS (9)
  - Pulmonary interstitial emphysema syndrome [None]
  - Therapy non-responder [None]
  - Diffuse alveolar damage [None]
  - Respiratory tract infection viral [None]
  - Idiopathic pulmonary fibrosis [None]
  - Heparin-induced thrombocytopenia [None]
  - Lung transplant [None]
  - Respiratory failure [None]
  - Traumatic haemothorax [None]
